FAERS Safety Report 5216427-4 (Version None)
Quarter: 2007Q1

REPORT INFORMATION
  Report Type: 
  Country: None (occurrence: None)
  Receive Date: 20061127
  Receipt Date: 20060804
  Transmission Date: 20070707
  Serious: Yes (Other)
  Sender: FDA-Public Use
  Company Number: HQWYE119107AUG06

PATIENT
  Sex: Female

DRUGS (1)
  1. INDERAL [Suspect]
     Indication: HEART RATE INCREASED
     Dosage: 10 MG 1X PER 1 DAY, ORAL
     Route: 048
     Dates: start: 19860101

REACTIONS (5)
  - DRUG WITHDRAWAL SYNDROME [None]
  - FEELING ABNORMAL [None]
  - PALPITATIONS [None]
  - TINNITUS [None]
  - TREMOR [None]
